FAERS Safety Report 26118628 (Version 1)
Quarter: 2025Q4

REPORT INFORMATION
  Report Type: Spontaneous
  Country: JP (occurrence: JP)
  Receive Date: 20251203
  Receipt Date: 20251203
  Transmission Date: 20260117
  Serious: Yes (Hospitalization)
  Sender: ALEXION PHARMACEUTICALS
  Company Number: JP-ASTRAZENECA-202511JPN023653JP

PATIENT

DRUGS (1)
  1. VOYDEYA [Suspect]
     Active Substance: DANICOPAN
     Dosage: UNK
     Route: 065

REACTIONS (1)
  - Illness [Unknown]
